FAERS Safety Report 12615739 (Version 1)
Quarter: 2016Q3

REPORT INFORMATION
  Report Type: Spontaneous
  Country: US (occurrence: US)
  Receive Date: 20160802
  Receipt Date: 20160802
  Transmission Date: 20161109
  Serious: Yes (Other)
  Sender: FDA-Public Use
  Company Number: US-BAYER-2016-148380

PATIENT
  Sex: Female

DRUGS (1)
  1. GADAVIST [Suspect]
     Active Substance: GADOBUTROL
     Dosage: 7 ML, ONCE

REACTIONS (3)
  - Throat irritation [Recovered/Resolved]
  - Expired product administered [Recovered/Resolved]
  - Ear congestion [Recovered/Resolved]
